FAERS Safety Report 4402052-1 (Version None)
Quarter: 2004Q3

REPORT INFORMATION
  Report Type: 
  Country: None (occurrence: None)
  Receive Date: 20040719
  Receipt Date: 20040719
  Transmission Date: 20050211
  Serious: Yes (Hospitalization)
  Sender: FDA-Public Use
  Company Number: None

PATIENT
  Sex: Male
  Weight: 62 kg

DRUGS (1)
  1. 1FNA1B [Suspect]
     Indication: RENAL CANCER METASTATIC
     Dosage: 540 MCG QD SC
     Route: 058
     Dates: start: 20040301, end: 20040715

REACTIONS (1)
  - SMALL INTESTINAL OBSTRUCTION [None]
